FAERS Safety Report 11750583 (Version 1)
Quarter: 2015Q4

REPORT INFORMATION
  Report Type: Spontaneous
  Country: US (occurrence: US)
  Receive Date: 20151118
  Receipt Date: 20151118
  Transmission Date: 20160304
  Serious: No
  Sender: FDA-Public Use
  Company Number: US-EISAI MEDICAL RESEARCH-EC-2015-012005

PATIENT
  Age: 40 Year
  Sex: Female

DRUGS (2)
  1. ERIBULIN [Suspect]
     Active Substance: ERIBULIN
     Indication: BREAST CANCER METASTATIC
     Dosage: UNKNOWN
     Route: 041
  2. ERIBULIN [Suspect]
     Active Substance: ERIBULIN
     Dosage: UNKNOWN (DOSE REDUCTION)
     Route: 041

REACTIONS (1)
  - Neutropenia [Unknown]
